FAERS Safety Report 15738513 (Version 3)
Quarter: 2019Q1

REPORT INFORMATION
  Report Type: Spontaneous
  Country: US (occurrence: US)
  Receive Date: 20181219
  Receipt Date: 20190327
  Transmission Date: 20190417
  Serious: Yes (Other)
  Sender: FDA-Public Use
  Company Number: US-PFIZER INC-2018503716

PATIENT
  Age: 48 Year
  Sex: Female
  Weight: 77.11 kg

DRUGS (2)
  1. LYRICA [Suspect]
     Active Substance: PREGABALIN
     Indication: LIMB TRAUMATIC AMPUTATION
     Dosage: 75 MG, 2X/DAY
     Route: 048
     Dates: start: 201811, end: 201812
  2. LYRICA [Suspect]
     Active Substance: PREGABALIN
     Indication: NEUROPATHY PERIPHERAL
     Dosage: 100 MG, 2X/DAY
     Route: 048
     Dates: start: 201812

REACTIONS (2)
  - Gastrointestinal perforation [Unknown]
  - Drug effect incomplete [Recovered/Resolved]
